FAERS Safety Report 4807884-3 (Version None)
Quarter: 2005Q4

REPORT INFORMATION
  Report Type: 
  Country: None (occurrence: None)
  Receive Date: 20051021
  Receipt Date: 20051018
  Transmission Date: 20060501
  Serious: Yes (Hospitalization)
  Sender: FDA-Public Use
  Company Number: ENTC2005-0313

PATIENT
  Age: 59 Year
  Sex: Female
  Weight: 49.1 kg

DRUGS (1)
  1. STALEVO (LEVODOPOA, CARBIDOPA, ENTACAPONE) [Suspect]
     Indication: PARKINSON'S DISEASE
     Dosage: 300 MG, 3 IN 1 D, ORAL
     Route: 048
     Dates: start: 20050707

REACTIONS (1)
  - LUNG NEOPLASM MALIGNANT [None]
